FAERS Safety Report 10187169 (Version 2)
Quarter: 2014Q2

REPORT INFORMATION
  Report Type: Spontaneous
  Country: GB (occurrence: None)
  Receive Date: 20140520
  Receipt Date: 20140523
  Transmission Date: 20141212
  Serious: Yes (Other)
  Sender: FDA-Public Use
  Company Number: AUR-APL-2014-05681

PATIENT
  Age: 46 Year
  Sex: Male

DRUGS (1)
  1. SUMATRIPTAN (SUMATRIPTAN) [Suspect]
     Indication: MIGRAINE

REACTIONS (3)
  - Adrenal disorder [None]
  - Atrial fibrillation [None]
  - Wolff-Parkinson-White syndrome [None]
